FAERS Safety Report 12051232 (Version 1)
Quarter: 2016Q1

REPORT INFORMATION
  Report Type: Spontaneous
  Country: IT (occurrence: IT)
  Receive Date: 20160209
  Receipt Date: 20160209
  Transmission Date: 20160526
  Serious: Yes (Other)
  Sender: FDA-Public Use
  Company Number: PHHY2016IT015799

PATIENT
  Age: 76 Year
  Sex: Male

DRUGS (7)
  1. EVEROLIMUS [Suspect]
     Active Substance: EVEROLIMUS
     Indication: CLEAR CELL RENAL CELL CARCINOMA
     Dosage: 10 MG, QD
     Route: 065
     Dates: start: 201108
  2. PAZOPANIB [Suspect]
     Active Substance: PAZOPANIB
     Indication: CLEAR CELL RENAL CELL CARCINOMA
     Dosage: 800 MG, QD
     Route: 065
     Dates: start: 201202
  3. PAZOPANIB [Suspect]
     Active Substance: PAZOPANIB
     Dosage: 600 MG, QD
     Route: 065
  4. PAZOPANIB [Suspect]
     Active Substance: PAZOPANIB
     Dosage: UNK
     Route: 065
  5. SUNITINIB [Suspect]
     Active Substance: SUNITINIB
     Dosage: 37.5 MG, QD
     Route: 065
  6. PAZOPANIB [Suspect]
     Active Substance: PAZOPANIB
     Dosage: 400 MG, QD
     Route: 065
  7. SUNITINIB [Suspect]
     Active Substance: SUNITINIB
     Indication: CLEAR CELL RENAL CELL CARCINOMA
     Dosage: 50 MG, QD
     Route: 065
     Dates: start: 200908

REACTIONS (6)
  - Asthenia [Unknown]
  - Oedema peripheral [Unknown]
  - Mucosal inflammation [Unknown]
  - Myalgia [Unknown]
  - Hypertension [Unknown]
  - Malignant neoplasm progression [Unknown]
